FAERS Safety Report 21314293 (Version 1)
Quarter: 2022Q3

REPORT INFORMATION
  Report Type: Spontaneous
  Country: US (occurrence: None)
  Receive Date: 20220909
  Receipt Date: 20220909
  Transmission Date: 20221026
  Serious: No
  Sender: FDA-Public Use
  Company Number: US-ARIS GLOBAL-202109-1747

PATIENT
  Sex: Male

DRUGS (5)
  1. OXERVATE [Suspect]
     Active Substance: CENEGERMIN-BKBJ
     Indication: Neurotrophic keratopathy
     Route: 047
     Dates: start: 20210922, end: 20211115
  2. OXERVATE [Suspect]
     Active Substance: CENEGERMIN-BKBJ
     Indication: Illness
     Route: 047
     Dates: start: 20211126, end: 20211228
  3. OXYCODONE HYDROCHLORIDE [Concomitant]
     Active Substance: OXYCODONE HYDROCHLORIDE
  4. VITAMIN D-400 [Concomitant]
  5. GABAPENTIN [Concomitant]
     Active Substance: GABAPENTIN

REACTIONS (9)
  - Eye irritation [Not Recovered/Not Resolved]
  - Photophobia [Unknown]
  - Wrong technique in product usage process [Unknown]
  - Intentional product misuse [Unknown]
  - Product use issue [Unknown]
  - Eye pain [Not Recovered/Not Resolved]
  - Swelling face [Recovering/Resolving]
  - Dry eye [Unknown]
  - Therapy interrupted [Unknown]
